FAERS Safety Report 8557069 (Version 3)
Quarter: 2013Q2

REPORT INFORMATION
  Report Type: Spontaneous
  Country: US (occurrence: US)
  Receive Date: 20120511
  Receipt Date: 20130610
  Transmission Date: 20140414
  Serious: Yes (Hospitalization)
  Sender: FDA-Public Use
  Company Number: US-BAYER-2012-045691

PATIENT
  Age: 31 Year
  Sex: Female
  Weight: 170 kg

DRUGS (10)
  1. YAZ [Suspect]
     Indication: OVARIAN CYST
  2. OCELLA [Suspect]
     Indication: CONTRACEPTION
     Dosage: UNK
  3. YASMIN [Suspect]
     Indication: CONTRACEPTION
  4. VENLAFAXINE [Concomitant]
     Dosage: 75 MG, LONG TERM USE
  5. ZOLPIDEM [Concomitant]
     Dosage: 10 MG, LONG TERM USE
  6. VICODIN [Concomitant]
     Dosage: UNK
     Dates: start: 20100505
  7. EFFEXOR XR [Concomitant]
     Indication: DEPRESSION
  8. PERCOCET [Concomitant]
  9. AMBIEN [Concomitant]
     Indication: SLEEP DISORDER
  10. ACETAMINOPHEN W/OXYCODONE [Concomitant]

REACTIONS (3)
  - Thrombosis [None]
  - Mental disorder [None]
  - Deep vein thrombosis [Recovered/Resolved]
